FAERS Safety Report 10276670 (Version 1)
Quarter: 2014Q3

REPORT INFORMATION
  Report Type: Spontaneous
  Country: DE (occurrence: DE)
  Receive Date: 20140703
  Receipt Date: 20140703
  Transmission Date: 20150326
  Serious: Yes (Death, Hospitalization, Other)
  Sender: FDA-Public Use
  Company Number: DE-TEVA-491238GER

PATIENT
  Sex: Male

DRUGS (1)
  1. VIGIL [Suspect]
     Active Substance: MODAFINIL
     Indication: NARCOLEPSY

REACTIONS (11)
  - Completed suicide [Fatal]
  - Drug ineffective [Recovered/Resolved]
  - Insomnia [Unknown]
  - Paranoia [Not Recovered/Not Resolved]
  - Alcohol interaction [Unknown]
  - Drug dependence [Not Recovered/Not Resolved]
  - Drug abuse [Unknown]
  - Schizophrenia [Not Recovered/Not Resolved]
  - Bipolar I disorder [Not Recovered/Not Resolved]
  - Psychotic disorder [Not Recovered/Not Resolved]
  - Energy increased [Not Recovered/Not Resolved]
